FAERS Safety Report 6303648-2 (Version None)
Quarter: 2009Q3

REPORT INFORMATION
  Report Type: 
  Country: None (occurrence: None)
  Receive Date: 20090807
  Receipt Date: 20090807
  Transmission Date: 20100115
  Serious: No
  Sender: FDA-Public Use
  Company Number: None

PATIENT
  Age: 61 Year
  Sex: Male
  Weight: 90.7194 kg

DRUGS (1)
  1. PROPECIA [Suspect]
     Indication: ALOPECIA
     Dosage: ONE TABLET, DAILY, PO
     Route: 048
     Dates: start: 20090429, end: 20090804

REACTIONS (2)
  - ERECTILE DYSFUNCTION [None]
  - LOSS OF LIBIDO [None]
